FAERS Safety Report 9360792 (Version 1)
Quarter: 2013Q2

REPORT INFORMATION
  Report Type: Spontaneous
  Country: US (occurrence: US)
  Receive Date: 20130621
  Receipt Date: 20130621
  Transmission Date: 20140414
  Serious: Yes (Life-Threatening, Hospitalization, Other)
  Sender: FDA-Public Use
  Company Number: US-ELI_LILLY_AND_COMPANY-US201306005886

PATIENT
  Age: 69 Year
  Sex: Female
  Weight: 62.59 kg

DRUGS (1)
  1. HUMALOG LISPRO [Suspect]
     Route: 058

REACTIONS (4)
  - Respiratory failure [Unknown]
  - Coma [Not Recovered/Not Resolved]
  - Diabetic ketoacidosis [Unknown]
  - Blood glucose increased [Unknown]
